FAERS Safety Report 8250871-6 (Version None)
Quarter: 2012Q2

REPORT INFORMATION
  Report Type: 
  Country: None (occurrence: None)
  Receive Date: 20120402
  Receipt Date: 20120322
  Transmission Date: 20120825
  Serious: Yes (Hospitalization)
  Sender: FDA-Public Use
  Company Number: PHHO2012LB004053

PATIENT
  Sex: Female
  Weight: 62 kg

DRUGS (10)
  1. COMPARATOR TRASTUZUMAB [Suspect]
     Indication: BREAST CANCER METASTATIC
     Dosage: 140 MG, QW
     Route: 042
     Dates: start: 20111020, end: 20120302
  2. ZOMETA [Suspect]
     Indication: METASTASES TO BONE
  3. DICLOFENAC SODIUM [Suspect]
     Indication: PAIN
     Dosage: 50 MG, BID
     Route: 048
     Dates: start: 20111201, end: 20120308
  4. CHLORPHENIRAMINE MALEATE [Suspect]
     Indication: PAIN
     Dosage: 4 MG, BID
     Route: 048
     Dates: start: 20111201, end: 20120308
  5. ACETAMINOPHEN [Suspect]
     Indication: PAIN
     Dosage: 500 MG, BID
     Route: 048
     Dates: start: 20111201, end: 20120308
  6. SINLIP [Concomitant]
     Indication: HYPERCHOLESTEROLAEMIA
     Dosage: 10 MG DAILY
     Route: 048
     Dates: start: 20111215
  7. BLINDED NO TREATMENT RECEIVED [Suspect]
     Indication: BREAST CANCER METASTATIC
     Dosage: DOUBLE BLINDED
     Dates: start: 20111020, end: 20120308
  8. PACLITAXEL [Suspect]
     Indication: BREAST CANCER METASTATIC
     Dosage: 140 MG, UNK
     Route: 042
     Dates: start: 20111020, end: 20120224
  9. AFINITOR [Suspect]
     Indication: BREAST CANCER METASTATIC
     Dosage: DOUBLE BLINDED
     Dates: start: 20111020, end: 20120308
  10. BLINDED PLACEBO [Suspect]
     Indication: BREAST CANCER METASTATIC
     Dosage: DOUBLE BLINDED
     Dates: start: 20111020, end: 20120308

REACTIONS (1)
  - RENAL FAILURE ACUTE [None]
